FAERS Safety Report 9205818 (Version 2)
Quarter: 2013Q2

REPORT INFORMATION
  Report Type: Spontaneous
  Country: US (occurrence: None)
  Receive Date: 20130401
  Receipt Date: 20130415
  Transmission Date: 20140414
  Serious: Yes (Death)
  Sender: FDA-Public Use
  Company Number: 1303-366

PATIENT
  Age: 79 Year
  Sex: Male

DRUGS (6)
  1. EYLEA (AFLIBERCEPT) (INJECTION) (AFLIBERCEPT) [Suspect]
     Indication: AGE-RELATED MACULAR DEGENERATION
     Dosage: 2 MG, 1 IN 2 M
     Dates: start: 20120509
  2. LOPRESSOR (METOPROLOL TARTRATE) [Concomitant]
  3. ASA (ACETYLSALICYLIC ACID) [Concomitant]
  4. SYMBICORT [Concomitant]
  5. COMBIVENT (COMBIVENT) [Concomitant]
  6. COUMADIN (WARFARIN SODIUM) [Concomitant]

REACTIONS (1)
  - Sudden death [None]
